FAERS Safety Report 5140918-8 (Version None)
Quarter: 2006Q4

REPORT INFORMATION
  Report Type: 
  Country: None (occurrence: None)
  Receive Date: 20060914
  Receipt Date: 20050729
  Transmission Date: 20070319
  Serious: Yes (Other)
  Sender: FDA-Public Use
  Company Number: PHEH2005US08408

PATIENT
  Sex: Female

DRUGS (1)
  1. DIOVAN [Suspect]
     Indication: HYPERTENSION
     Dosage: 160 MG, QD, ORAL
     Route: 048

REACTIONS (5)
  - ANGIONEUROTIC OEDEMA [None]
  - BLOOD PRESSURE FLUCTUATION [None]
  - COUGH [None]
  - HEADACHE [None]
  - RESPIRATORY TRACT INFECTION [None]
